FAERS Safety Report 4768076-X (Version None)
Quarter: 2005Q3

REPORT INFORMATION
  Report Type: 
  Country: None (occurrence: None)
  Receive Date: 20050912
  Receipt Date: 20050912
  Transmission Date: 20060218
  Serious: Yes (Other)
  Sender: FDA-Public Use
  Company Number: None

PATIENT
  Sex: Female
  Weight: 117.9352 kg

DRUGS (1)
  1. MIRAPEX [Suspect]
     Indication: RESTLESS LEGS SYNDROME
     Dosage: 0.75     THREE TIMES DAILY
     Dates: start: 20001101, end: 20041229

REACTIONS (4)
  - BANKRUPTCY [None]
  - GASTRIC BYPASS [None]
  - LEGAL PROBLEM [None]
  - PATHOLOGICAL GAMBLING [None]
